FAERS Safety Report 6156038-X (Version None)
Quarter: 2009Q2

REPORT INFORMATION
  Report Type: 
  Country: None (occurrence: None)
  Receive Date: 20090415
  Receipt Date: 20090206
  Transmission Date: 20091009
  Serious: No
  Sender: FDA-Public Use
  Company Number: US-BAYER-200912797NA

PATIENT
  Age: 30 Year
  Sex: Female
  Weight: 64 kg

DRUGS (2)
  1. MAGNEVIST [Suspect]
     Indication: NUCLEAR MAGNETIC RESONANCE IMAGING
     Dosage: TOTAL DAILY DOSE: 10 ML  UNIT DOSE: 20 ML
     Route: 042
     Dates: start: 20090205, end: 20090205
  2. ATIVAN [Concomitant]
     Indication: PREMEDICATION

REACTIONS (3)
  - CHEST DISCOMFORT [None]
  - COUGH [None]
  - THROAT TIGHTNESS [None]
